FAERS Safety Report 14641448 (Version 2)
Quarter: 2018Q1

REPORT INFORMATION
  Report Type: Report from Study
  Country: JP (occurrence: JP)
  Receive Date: 20180315
  Receipt Date: 20180316
  Transmission Date: 20180509
  Serious: Yes (Death)
  Sender: FDA-Public Use
  Company Number: JP-TAKEDA-2018TUS006424

PATIENT
  Age: 80 Year
  Sex: Female

DRUGS (5)
  1. PONATINIB [Suspect]
     Active Substance: PONATINIB
     Indication: ACUTE LYMPHOCYTIC LEUKAEMIA
     Dosage: 15 MG, QD
     Route: 048
     Dates: start: 20161205, end: 20161214
  2. ISOSORBIDE DINITRATE. [Concomitant]
     Active Substance: ISOSORBIDE DINITRATE
     Indication: VASCULAR OCCLUSION
     Dosage: UNK
     Route: 065
     Dates: start: 201612
  3. PONATINIB [Suspect]
     Active Substance: PONATINIB
     Dosage: 15 MG, QOD
     Route: 048
     Dates: start: 20161221, end: 20170114
  4. BAYASPIRIN [Concomitant]
     Active Substance: ASPIRIN
     Indication: PROPHYLAXIS
     Dosage: UNK
     Route: 065
     Dates: start: 20161204, end: 20170114
  5. NITROGLYCERIN. [Concomitant]
     Active Substance: NITROGLYCERIN
     Indication: VASCULAR OCCLUSION
     Dosage: UNK
     Route: 065
     Dates: start: 201612

REACTIONS (2)
  - Adverse event [Fatal]
  - Vascular occlusion [Recovered/Resolved]

NARRATIVE: CASE EVENT DATE: 20161215
